FAERS Safety Report 12725116 (Version 3)
Quarter: 2017Q1

REPORT INFORMATION
  Report Type: Spontaneous
  Country: DK (occurrence: DK)
  Receive Date: 20160908
  Receipt Date: 20170302
  Transmission Date: 20170428
  Serious: Yes (Hospitalization)
  Sender: FDA-Public Use
  Company Number: DK-NOVOPROD-508128

PATIENT
  Age: 55 Year
  Sex: Female
  Weight: 68 kg

DRUGS (3)
  1. ACTIVELLE [Suspect]
     Active Substance: ESTRADIOL\NORETHINDRONE ACETATE
     Indication: MENOPAUSE
     Dosage: UNK
     Route: 065
     Dates: start: 20160706, end: 20160908
  2. ACTIVELLE [Suspect]
     Active Substance: ESTRADIOL\NORETHINDRONE ACETATE
     Indication: MENOPAUSAL DISORDER
  3. ACTIVELLE [Suspect]
     Active Substance: ESTRADIOL\NORETHINDRONE ACETATE
     Indication: HOT FLUSH

REACTIONS (6)
  - Joint swelling [Recovering/Resolving]
  - Arthritis [Unknown]
  - Limb discomfort [Unknown]
  - Arthralgia [Recovering/Resolving]
  - Withdrawal syndrome [Unknown]
  - Joint stiffness [Unknown]

NARRATIVE: CASE EVENT DATE: 20160808
